FAERS Safety Report 8512941-4 (Version None)
Quarter: 2012Q3

REPORT INFORMATION
  Report Type: 
  Country: None (occurrence: None)
  Receive Date: 20120716
  Receipt Date: 20120705
  Transmission Date: 20120928
  Serious: Yes (Other)
  Sender: FDA-Public Use
  Company Number: AU-ELI_LILLY_AND_COMPANY-AU201207002097

PATIENT
  Sex: Male

DRUGS (8)
  1. FUROSEMIDE [Concomitant]
  2. LANTUS [Concomitant]
  3. PANTOPRAZOLE [Concomitant]
  4. EFFIENT [Suspect]
     Dosage: UNK, UNKNOWN
  5. CARVEDILOL [Concomitant]
  6. PRAVASTATIN SODIUM [Concomitant]
  7. VALSARTAN [Concomitant]
  8. SPIRONOLACTONE [Concomitant]

REACTIONS (4)
  - DRUG INTERACTION [None]
  - HYPOGLYCAEMIA [None]
  - CARDIAC DISORDER [None]
  - BLOOD GLUCOSE FLUCTUATION [None]
